FAERS Safety Report 9419574 (Version 2)
Quarter: 2013Q3

REPORT INFORMATION
  Report Type: Spontaneous
  Country: US (occurrence: US)
  Receive Date: 20130725
  Receipt Date: 20130812
  Transmission Date: 20140515
  Serious: Yes (Other)
  Sender: FDA-Public Use
  Company Number: US-009507513-1307USA012652

PATIENT
  Sex: Female
  Weight: 58.5 kg

DRUGS (6)
  1. MIRALAX [Suspect]
     Indication: CONSTIPATION
     Dosage: 17 G, UNK
     Route: 048
     Dates: start: 201302, end: 201308
  2. MIRALAX [Suspect]
     Indication: MEDICAL OBSERVATION
  3. JANUVIA [Concomitant]
     Indication: DIABETES MELLITUS
     Dosage: 10 MG, QD
     Route: 048
  4. ZOCOR [Concomitant]
     Indication: BLOOD CHOLESTEROL
     Dosage: 40 MG, UNK
     Route: 048
  5. ASPIRIN [Concomitant]
     Dosage: 81 MG, QD
     Route: 048
  6. CELEBREX [Concomitant]
     Indication: OSTEOARTHRITIS
     Dosage: 200 MG, PRN
     Route: 048

REACTIONS (2)
  - Renal failure acute [Not Recovered/Not Resolved]
  - Blood creatine increased [Not Recovered/Not Resolved]
